FAERS Safety Report 9054806 (Version 1)
Quarter: 2013Q1

REPORT INFORMATION
  Report Type: Spontaneous
  Country: DE (occurrence: DE)
  Receive Date: 20130208
  Receipt Date: 20130208
  Transmission Date: 20140127
  Serious: Yes (Death)
  Sender: FDA-Public Use
  Company Number: PHHY2013DE003698

PATIENT
  Age: 72 Year
  Sex: Male

DRUGS (3)
  1. TEGRETAL [Suspect]
     Indication: ALCOHOL WITHDRAWAL SYNDROME
     Dosage: 600 MG, DAILY (HALF IN MORNING AND HALF IN EVENING)
     Route: 048
     Dates: start: 200811
  2. TAVOR//LORAZEPAM [Concomitant]
  3. RISPERDAL [Concomitant]

REACTIONS (3)
  - Toxicity to various agents [Fatal]
  - Overdose [Fatal]
  - Wrong technique in drug usage process [Unknown]
